FAERS Safety Report 21603421 (Version 2)
Quarter: 2022Q4

REPORT INFORMATION
  Report Type: Report from Study
  Country: US (occurrence: US)
  Receive Date: 20221116
  Receipt Date: 20221230
  Transmission Date: 20230113
  Serious: Yes (Life-Threatening, Disabling, Other)
  Sender: FDA-Public Use
  Company Number: US-002147023-NVSC2022US258043

PATIENT
  Age: 60 Year
  Sex: Female
  Weight: 55.791 kg

DRUGS (4)
  1. ENTRESTO [Suspect]
     Active Substance: SACUBITRIL\VALSARTAN
     Indication: Chronic left ventricular failure
     Dosage: 1 DOSAGE FORM, BID (ONCE OR TWICE A DAY DEPENDING ON BLOOD PRESSURE, DOCTOR WAS AWARE)
     Route: 048
     Dates: start: 202104
  2. ENTRESTO [Suspect]
     Active Substance: SACUBITRIL\VALSARTAN
     Dosage: 1 DOSAGE FORM, QHS
     Route: 048
  3. COREG [Suspect]
     Active Substance: CARVEDILOL
     Indication: Chronic left ventricular failure
     Dosage: 6.5 MG, BID
     Route: 065
  4. COREG [Suspect]
     Active Substance: CARVEDILOL
     Dosage: 12.5 MG, BID
     Route: 065
     Dates: start: 20211117

REACTIONS (7)
  - Blood pressure fluctuation [Recovering/Resolving]
  - Decreased activity [Unknown]
  - Angiopathy [Unknown]
  - Vascular pseudoaneurysm [Unknown]
  - Palpitations [Unknown]
  - Diastolic dysfunction [Unknown]
  - Atrial tachycardia [Unknown]

NARRATIVE: CASE EVENT DATE: 20210401
